FAERS Safety Report 21124514 (Version 1)
Quarter: 2022Q3

REPORT INFORMATION
  Report Type: Spontaneous
  Country: US (occurrence: None)
  Receive Date: 20220722
  Receipt Date: 20220722
  Transmission Date: 20221026
  Serious: No
  Sender: FDA-Public Use
  Company Number: None

PATIENT
  Sex: Male
  Weight: 75.3 kg

DRUGS (18)
  1. LENALIDOMIDE [Suspect]
     Active Substance: LENALIDOMIDE
     Indication: Plasma cell myeloma
     Dosage: OTHER FREQUENCY : DAILY 21D-7D OFF;?
     Route: 048
     Dates: start: 202206
  2. ACYCLOVIR [Concomitant]
     Active Substance: ACYCLOVIR
  3. ALLOPURINOL [Concomitant]
     Active Substance: ALLOPURINOL
  4. AMLODIPINE [Concomitant]
     Active Substance: AMLODIPINE BESYLATE
  5. BACLOFEN [Concomitant]
     Active Substance: BACLOFEN
  6. BYSTOLIC [Concomitant]
     Active Substance: NEBIVOLOL HYDROCHLORIDE
  7. CYMBALTA [Concomitant]
     Active Substance: DULOXETINE HYDROCHLORIDE
  8. FENTANYL [Concomitant]
     Active Substance: FENTANYL
  9. LIDODERM [Concomitant]
     Active Substance: LIDOCAINE
  10. MAGNESIUM OXIDE [Concomitant]
     Active Substance: MAGNESIUM OXIDE
  11. MELATONIN [Concomitant]
     Active Substance: MELATONIN
  12. MIRAPEX ER [Concomitant]
     Active Substance: PRAMIPEXOLE DIHYDROCHLORIDE
  13. Multivitamins/Minerals with ADEK, Folate, iron [Concomitant]
  14. Niva-Fol [Concomitant]
  15. Sinemet CR [Concomitant]
  16. TAMSULOSIN [Concomitant]
     Active Substance: TAMSULOSIN
  17. VITAMIN D3 [Concomitant]
     Active Substance: CHOLECALCIFEROL
  18. WELLBUTRIN XL [Concomitant]
     Active Substance: BUPROPION HYDROCHLORIDE

REACTIONS (2)
  - Disease progression [None]
  - Biopsy bone marrow abnormal [None]
